FAERS Safety Report 11472502 (Version 2)
Quarter: 2015Q4

REPORT INFORMATION
  Report Type: Spontaneous
  Country: JP (occurrence: JP)
  Receive Date: 20150908
  Receipt Date: 20151012
  Transmission Date: 20160304
  Serious: Yes (Hospitalization)
  Sender: FDA-Public Use
  Company Number: PHJP2015JP012595

PATIENT
  Age: 82 Year

DRUGS (1)
  1. TEGRETOL [Suspect]
     Active Substance: CARBAMAZEPINE
     Indication: EPILEPSY
     Dosage: 300 MG, (200 MG IN THE MORNING AND 100 MG IN THE EVENING)
     Route: 048

REACTIONS (1)
  - Dysphagia [Unknown]
